FAERS Safety Report 17763618 (Version 2)
Quarter: 2022Q1

REPORT INFORMATION
  Report Type: Spontaneous
  Country: US (occurrence: US)
  Receive Date: 20200509
  Receipt Date: 20220318
  Transmission Date: 20220424
  Serious: Yes (Other)
  Sender: FDA-Public Use
  Company Number: US-UCBSA-2020011357

PATIENT
  Age: 11 Year
  Sex: Female
  Weight: 28 kg

DRUGS (2)
  1. KEPPRA [Suspect]
     Active Substance: LEVETIRACETAM
     Indication: Product used for unknown indication
     Dosage: UNK
     Dates: start: 20191228, end: 20200201
  2. BRIVIACT [Suspect]
     Active Substance: BRIVARACETAM
     Indication: Product used for unknown indication
     Dosage: 75 MILLIGRAM, 2X/DAY (BID)
     Dates: start: 20200115, end: 20200301

REACTIONS (22)
  - Aggression [Recovering/Resolving]
  - Irritability [Recovering/Resolving]
  - Anxiety [Recovering/Resolving]
  - Belligerence [Recovering/Resolving]
  - Anger [Recovering/Resolving]
  - Agitation [Recovering/Resolving]
  - Mood altered [Recovering/Resolving]
  - Mood swings [Recovering/Resolving]
  - Affect lability [Recovering/Resolving]
  - Abnormal behaviour [Recovering/Resolving]
  - Paranoia [Recovering/Resolving]
  - Acute psychosis [Recovering/Resolving]
  - Restlessness [Recovering/Resolving]
  - Psychotic disorder [Recovering/Resolving]
  - Hallucination [Recovering/Resolving]
  - Nervousness [Recovering/Resolving]
  - Depression [Recovering/Resolving]
  - Tearfulness [Recovering/Resolving]
  - Apathy [Recovering/Resolving]
  - Psychomotor hyperactivity [Recovering/Resolving]
  - Prescribed overdose [Unknown]
  - Off label use [Unknown]

NARRATIVE: CASE EVENT DATE: 20200115
